FAERS Safety Report 8077257-1 (Version None)
Quarter: 2012Q1

REPORT INFORMATION
  Report Type: 
  Country: None (occurrence: None)
  Receive Date: 20120127
  Receipt Date: 20120124
  Transmission Date: 20120608
  Serious: Yes (Other)
  Sender: FDA-Public Use
  Company Number: US-BAYER-2012-007982

PATIENT
  Age: 49 Year

DRUGS (3)
  1. ALEVE (CAPLET) [Suspect]
     Indication: PAIN
     Route: 048
  2. ASPIRIN [Suspect]
     Indication: PAIN
     Route: 048
  3. IBUPROFEN [Suspect]
     Indication: PAIN

REACTIONS (3)
  - THROAT TIGHTNESS [None]
  - EYE SWELLING [None]
  - HYPERSENSITIVITY [None]
